FAERS Safety Report 9440749 (Version 1)
Quarter: 2013Q3

REPORT INFORMATION
  Report Type: Spontaneous
  Country: GB (occurrence: None)
  Receive Date: 20130801
  Receipt Date: 20130801
  Transmission Date: 20140515
  Serious: Yes (Other)
  Sender: FDA-Public Use
  Company Number: SYM-2013-07164

PATIENT
  Age: 77 Year
  Sex: Female

DRUGS (3)
  1. TIMOLOL MALEATE [Suspect]
     Indication: PRODUCT USED FOR UNKNOWN INDICATION
     Dosage: 0.25 % 2 IN 1 D, OPHTHALMIC
  2. LOSARTAN POTASSIUM [Suspect]
     Indication: HYPERTENSION
     Route: 048
  3. BISOPROLOL [Suspect]
     Indication: HYPERTENSION
     Route: 048

REACTIONS (4)
  - Asthenia [None]
  - Headache [None]
  - Dizziness [None]
  - Drug interaction [None]
